FAERS Safety Report 6416337-0 (Version None)
Quarter: 2009Q4

REPORT INFORMATION
  Report Type: 
  Country: None (occurrence: None)
  Receive Date: 20091027
  Receipt Date: 20091021
  Transmission Date: 20100525
  Serious: Yes (Disabling)
  Sender: FDA-Public Use
  Company Number: US-ELI_LILLY_AND_COMPANY-US200910005279

PATIENT
  Sex: Male

DRUGS (3)
  1. HUMALOG [Suspect]
  2. HUMALOG [Suspect]
  3. ZOCOR [Concomitant]

REACTIONS (5)
  - DEVICE MISUSE [None]
  - INCORRECT STORAGE OF DRUG [None]
  - NEUROPATHY PERIPHERAL [None]
  - RETINOPATHY [None]
  - WRONG TECHNIQUE IN DRUG USAGE PROCESS [None]
